FAERS Safety Report 20628654 (Version 3)
Quarter: 2023Q2

REPORT INFORMATION
  Report Type: Report from Study
  Country: DE (occurrence: DE)
  Receive Date: 20220323
  Receipt Date: 20230531
  Transmission Date: 20230722
  Serious: Yes (Death, Life-Threatening, Other)
  Sender: FDA-Public Use
  Company Number: DE-NOVARTISPH-NVSC2020DE235818

PATIENT
  Age: 79 Year
  Sex: Female
  Weight: 75.4 kg

DRUGS (10)
  1. COSENTYX [Suspect]
     Active Substance: SECUKINUMAB
     Indication: Psoriasis
     Dosage: 300 MG (14 WEEKS)
     Route: 058
     Dates: start: 20170105, end: 20200821
  2. TELMISARTAN [Concomitant]
     Active Substance: TELMISARTAN
     Indication: Hypertension
     Dosage: 80 MG, UNKNOWN
     Route: 065
     Dates: start: 201708
  3. HYDROCHLOROTHIAZIDE [Concomitant]
     Active Substance: HYDROCHLOROTHIAZIDE
     Indication: Hyperthyroidism
     Dosage: 12.5 MG, UNKNOWN
     Route: 065
     Dates: start: 201708
  4. GABAPENTIN [Concomitant]
     Active Substance: GABAPENTIN
     Indication: Epilepsy
     Dosage: 100 MG, UNKNOWN
     Route: 065
     Dates: start: 201708
  5. RISPERIDONE [Concomitant]
     Active Substance: RISPERIDONE
     Indication: Schizophrenia
     Dosage: 2 MG, UNKNOWN
     Route: 065
     Dates: start: 201708
  6. CHOLECALCIFEROL [Concomitant]
     Active Substance: CHOLECALCIFEROL
     Indication: Vitamin D deficiency
     Dosage: 20000 IU, Q2MO
     Route: 065
     Dates: start: 201708
  7. METHIMAZOLE [Concomitant]
     Active Substance: METHIMAZOLE
     Indication: Hyperthyroidism
     Dosage: 5 MG, QD
     Route: 065
     Dates: start: 20200730
  8. POTASSIUM CITRATE [Concomitant]
     Active Substance: POTASSIUM CITRATE
     Indication: Hypokalaemia
     Dosage: 1 DF, BID
     Route: 065
     Dates: start: 20200730
  9. NOVALGIN [Concomitant]
     Indication: Pain
     Dosage: UNK, QID (40-40-40-40)
     Route: 065
     Dates: start: 20200730
  10. HYDROMORPHONE [Concomitant]
     Active Substance: HYDROMORPHONE
     Indication: Pain
     Dosage: 1 DF, PRN (1, 3 MG AS NEEDED)
     Route: 065
     Dates: start: 20200730

REACTIONS (6)
  - Pancreatic carcinoma [Fatal]
  - Jaundice cholestatic [Unknown]
  - Chromaturia [Unknown]
  - Biliary obstruction [Unknown]
  - Hepatic steatosis [Unknown]
  - Cholelithiasis [Unknown]

NARRATIVE: CASE EVENT DATE: 20200730
